FAERS Safety Report 15539162 (Version 2)
Quarter: 2019Q1

REPORT INFORMATION
  Report Type: Report from Study
  Country: US (occurrence: US)
  Receive Date: 20181022
  Receipt Date: 20190103
  Transmission Date: 20190417
  Serious: Yes (Death, Hospitalization)
  Sender: FDA-Public Use
  Company Number: US-ACTELION-A-US2017-158442

PATIENT
  Age: 53 Year
  Sex: Female
  Weight: 76.64 kg

DRUGS (6)
  1. UPTRAVI [Suspect]
     Active Substance: SELEXIPAG
     Indication: PULMONARY ARTERIAL HYPERTENSION
     Dosage: 1000 MCG, BID
     Route: 048
  2. ADCIRCA [Concomitant]
     Active Substance: TADALAFIL
     Dosage: UNK
  3. UPTRAVI [Suspect]
     Active Substance: SELEXIPAG
     Route: 048
  4. OPSUMIT [Suspect]
     Active Substance: MACITENTAN
     Indication: PULMONARY ARTERIAL HYPERTENSION
     Dosage: 10 MG, QD
     Route: 048
  5. WARFARIN [Concomitant]
     Active Substance: WARFARIN
  6. UPTRAVI [Suspect]
     Active Substance: SELEXIPAG
     Dosage: 800 MCG, BID
     Route: 048
     Dates: start: 20171105

REACTIONS (16)
  - Pain [Unknown]
  - Eructation [Unknown]
  - Pain in extremity [Unknown]
  - Dysgeusia [Unknown]
  - Fatigue [Unknown]
  - Diarrhoea [Unknown]
  - Headache [Unknown]
  - Therapy non-responder [Unknown]
  - Cardiac failure [Unknown]
  - Oedema [Unknown]
  - Dizziness postural [Unknown]
  - Syncope [Unknown]
  - Death [Fatal]
  - Hospitalisation [Unknown]
  - Dyspnoea exertional [Unknown]
  - Pain in jaw [Unknown]

NARRATIVE: CASE EVENT DATE: 20181205
